FAERS Safety Report 5203156-6 (Version None)
Quarter: 2006Q4

REPORT INFORMATION
  Report Type: 
  Country: None (occurrence: None)
  Receive Date: 20061016
  Receipt Date: 20060221
  Transmission Date: 20070319
  Serious: Yes (Hospitalization, Other)
  Sender: FDA-Public Use
  Company Number: 2006027011

PATIENT
  Age: 47 Year
  Sex: Male

DRUGS (1)
  1. NEURONTIN [Suspect]
     Indication: EPILEPSY
     Dosage: 1200 MG (1 D)
     Dates: start: 19960101

REACTIONS (12)
  - AGGRESSION [None]
  - AGITATION [None]
  - AMNESIA [None]
  - ANOREXIA [None]
  - ANXIETY [None]
  - DEPRESSION [None]
  - FEELING ABNORMAL [None]
  - INSOMNIA [None]
  - IRRITABILITY [None]
  - SELF-INJURIOUS IDEATION [None]
  - SUICIDAL IDEATION [None]
  - SUICIDE ATTEMPT [None]
